FAERS Safety Report 14067448 (Version 1)
Quarter: 2017Q4

REPORT INFORMATION
  Report Type: Spontaneous
  Country: US (occurrence: US)
  Receive Date: 20171008
  Receipt Date: 20171008
  Transmission Date: 20180321
  Serious: Yes (Other)
  Sender: FDA-Public Use
  Company Number: None

PATIENT
  Sex: Female
  Weight: 54 kg

DRUGS (8)
  1. METFORMIN HCL [Concomitant]
     Active Substance: METFORMIN HYDROCHLORIDE
  2. Q10 [Concomitant]
  3. IBANDRONATE SODIUM T [Concomitant]
  4. CRESTOR [Suspect]
     Active Substance: ROSUVASTATIN CALCIUM
     Indication: LOW DENSITY LIPOPROTEIN INCREASED
     Dosage: ?          QUANTITY:1 TABLET(S);?
     Route: 048
     Dates: start: 20170426, end: 20171001
  5. CENTRUM FOR W 50+ [Concomitant]
  6. METOPROLOL. [Concomitant]
     Active Substance: METOPROLOL
  7. HYDROCHLOROTHIAZIDE. [Concomitant]
     Active Substance: HYDROCHLOROTHIAZIDE
  8. CALCIUM [Concomitant]
     Active Substance: CALCIUM

REACTIONS (4)
  - Pain in extremity [None]
  - Arthritis [None]
  - Myalgia [None]
  - Tendon pain [None]

NARRATIVE: CASE EVENT DATE: 20170801
